FAERS Safety Report 4332405-1 (Version None)
Quarter: 2004Q2

REPORT INFORMATION
  Report Type: 
  Country: None (occurrence: None)
  Receive Date: 20040401
  Receipt Date: 20040316
  Transmission Date: 20050107
  Serious: Yes (Hospitalization)
  Sender: FDA-Public Use
  Company Number: 185691

PATIENT
  Age: 47 Year
  Sex: Female
  Weight: 52 kg

DRUGS (5)
  1. AVONEX [Suspect]
     Indication: MULTIPLE SCLEROSIS
     Dosage: 30 MCG QW IM
     Dates: start: 19980401, end: 20030908
  2. AVONEX [Suspect]
     Indication: MULTIPLE SCLEROSIS
     Dosage: 30 MCG QW IM
     Dates: start: 20030915
  3. L-THYROXIN-NATRIUM [Concomitant]
  4. OXYBUTYNIN [Concomitant]
  5. LEVOTHYROXINE SODIUM [Concomitant]

REACTIONS (2)
  - INFLUENZA LIKE ILLNESS [None]
  - THYROID NEOPLASM [None]
